FAERS Safety Report 9328995 (Version 2)
Quarter: 2013Q2

REPORT INFORMATION
  Report Type: Spontaneous
  Country: BR (occurrence: BR)
  Receive Date: 20130604
  Receipt Date: 20130604
  Transmission Date: 20140414
  Serious: Yes (Other)
  Sender: FDA-Public Use
  Company Number: PHHY2012BR011248

PATIENT
  Age: 72 Year
  Sex: Male

DRUGS (5)
  1. FORASEQ [Suspect]
     Indication: LUNG DISORDER
     Dosage: UNK
     Dates: end: 20120123
  2. AMINOFILINA [Suspect]
     Indication: LUNG DISORDER
     Dosage: UNK
     Dates: end: 20120123
  3. SERETIDE [Suspect]
     Indication: LUNG DISORDER
     Dosage: UNK
     Dates: end: 20120123
  4. FORMOCAPS [Suspect]
     Indication: LUNG DISORDER
     Dosage: UNK
     Dates: end: 20120123
  5. AEROLIN [Suspect]
     Indication: LUNG DISORDER
     Dosage: UNK
     Dates: end: 20120123

REACTIONS (2)
  - Localised infection [Unknown]
  - Product quality issue [None]
